FAERS Safety Report 21052704 (Version 1)
Quarter: 2022Q3

REPORT INFORMATION
  Report Type: Spontaneous
  Country: US (occurrence: US)
  Receive Date: 20220707
  Receipt Date: 20220707
  Transmission Date: 20221027
  Serious: No
  Sender: FDA-Public Use
  Company Number: US-GALDERMA-US2022008121

PATIENT

DRUGS (8)
  1. PROACTIV MD ADAPALENE ACNE TREATMENT [Suspect]
     Active Substance: ADAPALENE
     Indication: Product used for unknown indication
     Dosage: 1 DOSAGE FORM, BID
     Route: 061
     Dates: start: 2007, end: 2022
  2. PROACTIV RENEWING CLEANSER [Concomitant]
     Active Substance: BENZOYL PEROXIDE
     Indication: Product used for unknown indication
     Dosage: 1 DOSAGE FORM, BID
     Route: 061
     Dates: start: 2007, end: 2022
  3. PROACTIV REPAIRING TREATMENT [Concomitant]
     Active Substance: BENZOYL PEROXIDE
     Indication: Product used for unknown indication
     Dosage: 1 DOSAGE FORM, BID
     Route: 061
     Dates: start: 2007, end: 2022
  4. COSMETICS [Concomitant]
     Active Substance: COSMETICS
     Indication: Product used for unknown indication
     Dosage: 1 DOSAGE FORM
     Route: 061
     Dates: start: 2007, end: 2022
  5. VITAMINS NOS [Concomitant]
     Active Substance: VITAMINS
     Indication: Product used for unknown indication
  6. APPLE CIDER VINEGAR [Concomitant]
     Active Substance: APPLE CIDER VINEGAR
     Indication: Product used for unknown indication
  7. IRON [Concomitant]
     Active Substance: IRON
     Indication: Product used for unknown indication
  8. LIPOSOMAL VITAMIN C [Concomitant]
     Indication: Product used for unknown indication

REACTIONS (6)
  - Dry skin [Recovering/Resolving]
  - Sensitive skin [Recovering/Resolving]
  - Skin burning sensation [Recovering/Resolving]
  - Skin irritation [Recovering/Resolving]
  - Overdose [Recovered/Resolved]
  - Inappropriate schedule of product administration [Recovered/Resolved]

NARRATIVE: CASE EVENT DATE: 20070101
